FAERS Safety Report 25210531 (Version 1)
Quarter: 2025Q2

REPORT INFORMATION
  Report Type: Spontaneous
  Country: US (occurrence: US)
  Receive Date: 20250417
  Receipt Date: 20250417
  Transmission Date: 20250717
  Serious: No
  Sender: PFIZER
  Company Number: US-PFIZER INC-PV202500042419

PATIENT
  Age: 86 Year
  Sex: Female

DRUGS (1)
  1. NURTEC ODT [Suspect]
     Active Substance: RIMEGEPANT SULFATE
     Indication: Migraine
     Route: 048
     Dates: start: 2023

REACTIONS (4)
  - Psychomotor hyperactivity [Unknown]
  - Nervousness [Unknown]
  - Restlessness [Unknown]
  - Dyspepsia [Unknown]
